FAERS Safety Report 9526798 (Version 2)
Quarter: 2013Q4

REPORT INFORMATION
  Report Type: Spontaneous
  Country: FR (occurrence: FR)
  Receive Date: 20130916
  Receipt Date: 20131003
  Transmission Date: 20140711
  Serious: Yes (Death, Hospitalization)
  Sender: FDA-Public Use
  Company Number: FR-GLAXOSMITHKLINE-B0921211A

PATIENT
  Age: 67 Year
  Sex: Male
  Weight: 82 kg

DRUGS (3)
  1. ARIXTRA [Suspect]
     Indication: THROMBOSIS PROPHYLAXIS
     Dosage: 1.5MG PER DAY
     Route: 058
     Dates: start: 20130825, end: 20130831
  2. ASPEGIC [Suspect]
     Indication: DRUG HYPERSENSITIVITY
     Dosage: 100MG PER DAY
     Route: 048
     Dates: start: 20130401, end: 20130831
  3. ORGARAN [Concomitant]
     Dates: end: 201308

REACTIONS (6)
  - Cerebral haemorrhage [Fatal]
  - Hypertensive crisis [Unknown]
  - Altered state of consciousness [Unknown]
  - Haemodynamic instability [Unknown]
  - Respiratory failure [Unknown]
  - Cardio-respiratory arrest [Unknown]
